FAERS Safety Report 13875457 (Version 13)
Quarter: 2022Q3

REPORT INFORMATION
  Report Type: Spontaneous
  Country: CA (occurrence: None)
  Receive Date: 20170817
  Receipt Date: 20220717
  Transmission Date: 20221027
  Serious: Yes (Hospitalization, Disabling, Other)
  Sender: FDA-Public Use
  Company Number: CA-ORION CORPORATION ORION PHARMA-TREX2015-0556

PATIENT
  Age: 40 Year
  Sex: Female

DRUGS (138)
  1. METHOTREXATE [Suspect]
     Active Substance: METHOTREXATE
     Indication: Rheumatoid arthritis
     Route: 065
  2. METHOTREXATE [Suspect]
     Active Substance: METHOTREXATE
     Route: 048
  3. METHOTREXATE [Suspect]
     Active Substance: METHOTREXATE
     Route: 048
  4. METHOTREXATE [Suspect]
     Active Substance: METHOTREXATE
     Route: 065
  5. METHOTREXATE [Suspect]
     Active Substance: METHOTREXATE
     Route: 058
  6. METHOTREXATE [Suspect]
     Active Substance: METHOTREXATE
     Route: 058
  7. METHOTREXATE [Suspect]
     Active Substance: METHOTREXATE
     Route: 058
  8. METHOTREXATE [Suspect]
     Active Substance: METHOTREXATE
     Route: 065
  9. METHOTREXATE [Suspect]
     Active Substance: METHOTREXATE
     Route: 065
  10. METHOTREXATE [Suspect]
     Active Substance: METHOTREXATE
     Route: 058
  11. METHOTREXATE [Suspect]
     Active Substance: METHOTREXATE
     Route: 058
  12. METHOTREXATE [Suspect]
     Active Substance: METHOTREXATE
     Route: 065
  13. ENBREL [Suspect]
     Active Substance: ETANERCEPT
     Indication: Rheumatoid arthritis
     Route: 058
     Dates: start: 200503, end: 200602
  14. ENBREL [Suspect]
     Active Substance: ETANERCEPT
     Route: 065
  15. ENBREL [Suspect]
     Active Substance: ETANERCEPT
     Route: 058
  16. ENBREL [Suspect]
     Active Substance: ETANERCEPT
     Route: 058
     Dates: start: 200503
  17. SULFASALAZINE [Suspect]
     Active Substance: SULFASALAZINE
     Indication: Rheumatoid arthritis
     Route: 065
  18. SULFASALAZINE [Suspect]
     Active Substance: SULFASALAZINE
     Route: 048
  19. SULFASALAZINE [Suspect]
     Active Substance: SULFASALAZINE
     Route: 058
  20. PREDNISONE [Suspect]
     Active Substance: PREDNISONE
     Indication: Rheumatoid arthritis
     Route: 048
  21. PREDNISONE [Suspect]
     Active Substance: PREDNISONE
     Route: 048
  22. PREDNISONE [Suspect]
     Active Substance: PREDNISONE
     Route: 065
  23. PREDNISONE [Suspect]
     Active Substance: PREDNISONE
     Route: 065
  24. PREDNISONE [Suspect]
     Active Substance: PREDNISONE
     Route: 065
  25. PREDNISONE [Suspect]
     Active Substance: PREDNISONE
     Route: 048
  26. PREDNISONE [Suspect]
     Active Substance: PREDNISONE
     Route: 048
  27. PREDNISONE [Suspect]
     Active Substance: PREDNISONE
     Route: 048
  28. ACTEMRA [Suspect]
     Active Substance: TOCILIZUMAB
     Indication: Rheumatoid arthritis
     Route: 042
     Dates: start: 201504, end: 20150819
  29. ACTEMRA [Suspect]
     Active Substance: TOCILIZUMAB
     Route: 065
  30. ACTEMRA [Suspect]
     Active Substance: TOCILIZUMAB
     Route: 065
  31. ACTEMRA [Suspect]
     Active Substance: TOCILIZUMAB
     Route: 042
  32. ACTEMRA [Suspect]
     Active Substance: TOCILIZUMAB
     Dosage: Q2WK, CYCLICAL
     Route: 065
  33. GOLD [Suspect]
     Active Substance: GOLD
     Indication: Product used for unknown indication
     Route: 065
  34. HUMIRA [Suspect]
     Active Substance: ADALIMUMAB
     Indication: Rheumatoid arthritis
     Route: 058
     Dates: start: 200602, end: 200605
  35. HUMIRA [Suspect]
     Active Substance: ADALIMUMAB
     Dosage: CYCLICAL
     Route: 058
  36. HUMIRA [Suspect]
     Active Substance: ADALIMUMAB
     Route: 058
  37. HUMIRA [Suspect]
     Active Substance: ADALIMUMAB
     Dosage: Q2WK, CYCLICAL
     Route: 058
  38. ARAVA [Suspect]
     Active Substance: LEFLUNOMIDE
     Indication: Rheumatoid arthritis
     Route: 065
  39. ARAVA [Suspect]
     Active Substance: LEFLUNOMIDE
     Route: 065
  40. ARAVA [Suspect]
     Active Substance: LEFLUNOMIDE
     Route: 048
  41. ARAVA [Suspect]
     Active Substance: LEFLUNOMIDE
     Route: 065
  42. ORENCIA [Suspect]
     Active Substance: ABATACEPT
     Indication: Rheumatoid arthritis
     Route: 042
     Dates: start: 200701, end: 201304
  43. ORENCIA [Suspect]
     Active Substance: ABATACEPT
     Route: 065
  44. ORENCIA [Suspect]
     Active Substance: ABATACEPT
     Route: 042
  45. ORENCIA [Suspect]
     Active Substance: ABATACEPT
     Route: 042
  46. ORENCIA [Suspect]
     Active Substance: ABATACEPT
     Route: 065
  47. ORENCIA [Suspect]
     Active Substance: ABATACEPT
     Route: 058
  48. ORENCIA [Suspect]
     Active Substance: ABATACEPT
     Route: 058
  49. ORENCIA [Suspect]
     Active Substance: ABATACEPT
     Route: 065
  50. ORENCIA [Suspect]
     Active Substance: ABATACEPT
     Route: 042
  51. REMICADE [Suspect]
     Active Substance: INFLIXIMAB
     Indication: Rheumatoid arthritis
     Route: 042
     Dates: start: 200605, end: 200701
  52. REMICADE [Suspect]
     Active Substance: INFLIXIMAB
     Route: 042
  53. REMICADE [Suspect]
     Active Substance: INFLIXIMAB
     Route: 065
  54. REMICADE [Suspect]
     Active Substance: INFLIXIMAB
     Route: 042
  55. REMICADE [Suspect]
     Active Substance: INFLIXIMAB
     Route: 042
  56. REMICADE [Suspect]
     Active Substance: INFLIXIMAB
     Route: 058
  57. RITUXAN [Suspect]
     Active Substance: RITUXIMAB
     Indication: Rheumatoid arthritis
     Route: 041
     Dates: start: 201304, end: 201308
  58. RITUXAN [Suspect]
     Active Substance: RITUXIMAB
     Route: 041
  59. SIMPONI [Suspect]
     Active Substance: GOLIMUMAB
     Indication: Rheumatoid arthritis
     Route: 058
     Dates: start: 201308, end: 201503
  60. SIMPONI [Suspect]
     Active Substance: GOLIMUMAB
     Route: 058
  61. SIMPONI [Suspect]
     Active Substance: GOLIMUMAB
     Route: 065
  62. SIMPONI [Suspect]
     Active Substance: GOLIMUMAB
     Route: 058
  63. LEFLUNOMIDE [Suspect]
     Active Substance: LEFLUNOMIDE
     Indication: Rheumatoid arthritis
     Route: 065
  64. LEFLUNOMIDE [Suspect]
     Active Substance: LEFLUNOMIDE
     Route: 048
  65. LEFLUNOMIDE [Suspect]
     Active Substance: LEFLUNOMIDE
     Route: 065
  66. PREDNISONE [Suspect]
     Active Substance: PREDNISONE
     Indication: Rheumatoid arthritis
     Route: 048
  67. PREDNISONE [Suspect]
     Active Substance: PREDNISONE
     Route: 048
  68. XELJANZ [Suspect]
     Active Substance: TOFACITINIB CITRATE
     Indication: Rheumatoid arthritis
     Route: 065
  69. XELJANZ [Suspect]
     Active Substance: TOFACITINIB CITRATE
     Dosage: CYCLICAL
     Route: 065
  70. XELJANZ [Suspect]
     Active Substance: TOFACITINIB CITRATE
     Route: 065
  71. XELJANZ [Suspect]
     Active Substance: TOFACITINIB CITRATE
     Route: 048
  72. XELJANZ [Suspect]
     Active Substance: TOFACITINIB CITRATE
     Route: 048
  73. XELJANZ [Suspect]
     Active Substance: TOFACITINIB CITRATE
     Route: 065
  74. TOFACITINIB CITRATE [Suspect]
     Active Substance: TOFACITINIB CITRATE
     Indication: Product used for unknown indication
     Route: 065
  75. TOFACITINIB CITRATE [Suspect]
     Active Substance: TOFACITINIB CITRATE
     Route: 065
  76. TOFACITINIB CITRATE [Suspect]
     Active Substance: TOFACITINIB CITRATE
     Route: 065
  77. TOFACITINIB CITRATE [Suspect]
     Active Substance: TOFACITINIB CITRATE
     Route: 065
  78. TOFACITINIB CITRATE [Suspect]
     Active Substance: TOFACITINIB CITRATE
     Route: 065
  79. CIMZIA [Suspect]
     Active Substance: CERTOLIZUMAB PEGOL
     Indication: Rheumatoid arthritis
     Route: 058
  80. HYDROXYCHLOROQUINE [Suspect]
     Active Substance: HYDROXYCHLOROQUINE
     Indication: Rheumatoid arthritis
     Route: 065
  81. PLAQUENIL [Suspect]
     Active Substance: HYDROXYCHLOROQUINE SULFATE
     Indication: Rheumatoid arthritis
     Route: 048
  82. PLAQUENIL [Suspect]
     Active Substance: HYDROXYCHLOROQUINE SULFATE
     Route: 048
  83. RITUXIMAB [Suspect]
     Active Substance: RITUXIMAB
     Indication: Rheumatoid arthritis
     Route: 042
  84. RITUXIMAB [Suspect]
     Active Substance: RITUXIMAB
     Route: 041
  85. RITUXIMAB [Suspect]
     Active Substance: RITUXIMAB
     Dosage: TWICE EVERY ONE DAY
     Route: 042
  86. RITUXIMAB [Suspect]
     Active Substance: RITUXIMAB
     Route: 042
  87. RITUXIMAB [Suspect]
     Active Substance: RITUXIMAB
     Route: 042
  88. RITUXIMAB [Suspect]
     Active Substance: RITUXIMAB
     Route: 042
  89. RITUXIMAB [Suspect]
     Active Substance: RITUXIMAB
     Route: 042
  90. HYDROXYCHLOROQUINE SULFATE [Suspect]
     Active Substance: HYDROXYCHLOROQUINE SULFATE
     Indication: Rheumatoid arthritis
     Route: 048
  91. HYDROXYCHLOROQUINE SULFATE [Suspect]
     Active Substance: HYDROXYCHLOROQUINE SULFATE
     Route: 065
  92. HYDROXYCHLOROQUINE SULFATE [Suspect]
     Active Substance: HYDROXYCHLOROQUINE SULFATE
     Route: 065
  93. HYDROXYCHLOROQUINE SULFATE [Suspect]
     Active Substance: HYDROXYCHLOROQUINE SULFATE
     Route: 048
  94. HYDROXYCHLOROQUINE SULFATE [Suspect]
     Active Substance: HYDROXYCHLOROQUINE SULFATE
     Route: 065
  95. METHYLPREDNISOLONE [Suspect]
     Active Substance: METHYLPREDNISOLONE
     Indication: Product used for unknown indication
     Route: 065
  96. INFLIXIMAB [Suspect]
     Active Substance: INFLIXIMAB
     Indication: Product used for unknown indication
     Route: 042
  97. INFLIXIMAB [Suspect]
     Active Substance: INFLIXIMAB
     Dosage: CYCLICAL
     Route: 042
  98. LEFLUNOMIDE [Suspect]
     Active Substance: LEFLUNOMIDE
     Indication: Rheumatoid arthritis
     Route: 048
  99. LEFLUNOMIDE [Suspect]
     Active Substance: LEFLUNOMIDE
     Route: 065
  100. LEFLUNOMIDE [Suspect]
     Active Substance: LEFLUNOMIDE
     Route: 065
  101. AZATHIOPRINE SODIUM [Suspect]
     Active Substance: AZATHIOPRINE SODIUM
     Indication: Product used for unknown indication
     Route: 065
  102. CERTOLIZUMAB PEGOL [Suspect]
     Active Substance: CERTOLIZUMAB PEGOL
     Indication: Product used for unknown indication
     Dosage: CYCLICAL
     Route: 058
  103. ERELZI [Suspect]
     Active Substance: ETANERCEPT-SZZS
     Indication: Rheumatoid arthritis
     Route: 065
  104. GOLD SODIUM THIOMALATE [Suspect]
     Active Substance: GOLD SODIUM THIOMALATE
     Indication: Product used for unknown indication
     Route: 065
  105. GOLD SODIUM THIOMALATE [Suspect]
     Active Substance: GOLD SODIUM THIOMALATE
     Route: 048
  106. TOCILIZUMAB [Suspect]
     Active Substance: TOCILIZUMAB
     Indication: Product used for unknown indication
     Route: 042
  107. TOCILIZUMAB [Suspect]
     Active Substance: TOCILIZUMAB
     Route: 065
  108. TOCILIZUMAB [Suspect]
     Active Substance: TOCILIZUMAB
     Route: 058
  109. TRAMADOL HYDROCHLORIDE [Suspect]
     Active Substance: TRAMADOL HYDROCHLORIDE
     Indication: Product used for unknown indication
     Route: 065
  110. MINOCIN [Suspect]
     Active Substance: MINOCYCLINE HYDROCHLORIDE
     Indication: Rheumatoid arthritis
     Route: 065
  111. MINOCYCLINE HYDROCHLORIDE [Suspect]
     Active Substance: MINOCYCLINE HYDROCHLORIDE
     Indication: Product used for unknown indication
     Route: 065
  112. MINOCYCLINE HYDROCHLORIDE [Suspect]
     Active Substance: MINOCYCLINE HYDROCHLORIDE
     Route: 065
  113. SULFASALAZINE [Suspect]
     Active Substance: SULFASALAZINE
     Indication: Rheumatoid arthritis
     Route: 065
  114. FOLIC ACID [Suspect]
     Active Substance: FOLIC ACID
     Indication: Product used for unknown indication
     Route: 065
  115. ACETAMINOPHEN [Suspect]
     Active Substance: ACETAMINOPHEN
     Indication: Product used for unknown indication
     Route: 065
  116. ACETAMINOPHEN [Suspect]
     Active Substance: ACETAMINOPHEN
     Indication: Product used for unknown indication
     Route: 065
  117. ALENDRONATE SODIUM [Suspect]
     Active Substance: ALENDRONATE SODIUM
     Indication: Product used for unknown indication
     Route: 065
  118. APREMILAST [Suspect]
     Active Substance: APREMILAST
     Indication: Rheumatoid arthritis
     Route: 065
  119. CETIRIZINE HYDROCHLORIDE [Suspect]
     Active Substance: CETIRIZINE HYDROCHLORIDE
     Indication: Product used for unknown indication
     Route: 065
  120. CORTISONE ACETATE [Suspect]
     Active Substance: CORTISONE ACETATE
     Indication: Product used for unknown indication
     Route: 065
  121. COSENTYX [Suspect]
     Active Substance: SECUKINUMAB
     Indication: Product used for unknown indication
     Route: 065
  122. DESOXIMETASONE [Suspect]
     Active Substance: DESOXIMETASONE
     Indication: Rheumatoid arthritis
     Route: 048
  123. DESOXIMETASONE [Suspect]
     Active Substance: DESOXIMETASONE
     Route: 058
  124. DICLOFENAC SODIUM [Suspect]
     Active Substance: DICLOFENAC SODIUM
     Indication: Product used for unknown indication
     Route: 065
  125. FLUMETHASONE PIVALATE [Suspect]
     Active Substance: FLUMETHASONE PIVALATE
     Indication: Product used for unknown indication
     Route: 065
  126. FOSAMAX [Suspect]
     Active Substance: ALENDRONATE SODIUM
     Indication: Product used for unknown indication
     Route: 065
  127. KEVZARA [Suspect]
     Active Substance: SARILUMAB
     Indication: Product used for unknown indication
     Route: 065
  128. MYOCHRYSINE [Suspect]
     Active Substance: GOLD SODIUM THIOMALATE
     Indication: Rheumatoid arthritis
     Route: 030
  129. PHTHALYLSULFATHIAZOLE [Suspect]
     Active Substance: PHTHALYLSULFATHIAZOLE
     Indication: Product used for unknown indication
     Route: 058
  130. PSEUDOEPHEDRINE HYDROCHLORIDE [Suspect]
     Active Substance: PSEUDOEPHEDRINE HYDROCHLORIDE
     Indication: Product used for unknown indication
     Route: 065
  131. SARILUMAB [Suspect]
     Active Substance: SARILUMAB
     Indication: Product used for unknown indication
     Route: 065
  132. SIRUKUMAB [Suspect]
     Active Substance: SIRUKUMAB
     Indication: Product used for unknown indication
     Route: 065
  133. STELARA [Suspect]
     Active Substance: USTEKINUMAB
     Indication: Rheumatoid arthritis
     Route: 058
  134. GOLD SODIUM THIOMALATE [Suspect]
     Active Substance: GOLD SODIUM THIOMALATE
     Indication: Product used for unknown indication
     Route: 065
  135. HYDROCORTISONE ACETATE [Suspect]
     Active Substance: HYDROCORTISONE ACETATE
     Indication: Product used for unknown indication
     Route: 065
  136. HYDROCORTISONE [Suspect]
     Active Substance: HYDROCORTISONE
     Indication: Product used for unknown indication
     Route: 065
  137. NAPROXEN [Concomitant]
     Active Substance: NAPROXEN
     Route: 065
  138. HYDROXYCHLOROQUINE [Concomitant]
     Active Substance: HYDROXYCHLOROQUINE
     Route: 065

REACTIONS (70)
  - Product complaint [Unknown]
  - Treatment failure [Not Recovered/Not Resolved]
  - Off label use [Not Recovered/Not Resolved]
  - Contraindicated product administered [Not Recovered/Not Resolved]
  - Therapeutic product effect decreased [Not Recovered/Not Resolved]
  - Therapeutic product effect incomplete [Not Recovered/Not Resolved]
  - Maternal exposure during pregnancy [Not Recovered/Not Resolved]
  - Product label confusion [Not Recovered/Not Resolved]
  - Product use issue [Not Recovered/Not Resolved]
  - Hepatic enzyme increased [Not Recovered/Not Resolved]
  - Rheumatoid arthritis [Not Recovered/Not Resolved]
  - Arthralgia [Not Recovered/Not Resolved]
  - Joint swelling [Not Recovered/Not Resolved]
  - Abdominal discomfort [Not Recovered/Not Resolved]
  - Coeliac disease [Not Recovered/Not Resolved]
  - Fatigue [Not Recovered/Not Resolved]
  - Grip strength decreased [Not Recovered/Not Resolved]
  - Headache [Not Recovered/Not Resolved]
  - Musculoskeletal stiffness [Not Recovered/Not Resolved]
  - Nail disorder [Not Recovered/Not Resolved]
  - Onychomycosis [Not Recovered/Not Resolved]
  - Loss of personal independence in daily activities [Not Recovered/Not Resolved]
  - Alopecia [Not Recovered/Not Resolved]
  - Anti-cyclic citrullinated peptide antibody positive [Not Recovered/Not Resolved]
  - Arthropathy [Not Recovered/Not Resolved]
  - Back injury [Not Recovered/Not Resolved]
  - C-reactive protein abnormal [Not Recovered/Not Resolved]
  - C-reactive protein increased [Not Recovered/Not Resolved]
  - Confusional state [Not Recovered/Not Resolved]
  - Drug hypersensitivity [Not Recovered/Not Resolved]
  - Fall [Not Recovered/Not Resolved]
  - Finger deformity [Not Recovered/Not Resolved]
  - Gait inability [Not Recovered/Not Resolved]
  - Hepatitis [Not Recovered/Not Resolved]
  - Hypersensitivity [Not Recovered/Not Resolved]
  - Inflammation [Not Recovered/Not Resolved]
  - Injury [Not Recovered/Not Resolved]
  - Liver function test increased [Not Recovered/Not Resolved]
  - Mobility decreased [Not Recovered/Not Resolved]
  - Muscular weakness [Not Recovered/Not Resolved]
  - Nausea [Not Recovered/Not Resolved]
  - Neck pain [Not Recovered/Not Resolved]
  - Pneumonia [Not Recovered/Not Resolved]
  - Rash [Not Recovered/Not Resolved]
  - Synovitis [Not Recovered/Not Resolved]
  - Vomiting [Not Recovered/Not Resolved]
  - Pain in extremity [Not Recovered/Not Resolved]
  - General physical health deterioration [Unknown]
  - Drug-induced liver injury [Not Recovered/Not Resolved]
  - Gastric disorder [Not Recovered/Not Resolved]
  - Abdominal distension [Not Recovered/Not Resolved]
  - Drug intolerance [Not Recovered/Not Resolved]
  - Dyspepsia [Not Recovered/Not Resolved]
  - Glossodynia [Not Recovered/Not Resolved]
  - Hand deformity [Not Recovered/Not Resolved]
  - Hypertension [Not Recovered/Not Resolved]
  - Insomnia [Not Recovered/Not Resolved]
  - Malaise [Not Recovered/Not Resolved]
  - Onychomadesis [Not Recovered/Not Resolved]
  - Pain [Not Recovered/Not Resolved]
  - Pemphigus [Not Recovered/Not Resolved]
  - Pericarditis [Not Recovered/Not Resolved]
  - Psoriatic arthropathy [Not Recovered/Not Resolved]
  - Rheumatic fever [Not Recovered/Not Resolved]
  - Sleep disorder [Not Recovered/Not Resolved]
  - Systemic lupus erythematosus [Not Recovered/Not Resolved]
  - Type 2 diabetes mellitus [Not Recovered/Not Resolved]
  - Wound [Not Recovered/Not Resolved]
  - Blood cholesterol increased [Not Recovered/Not Resolved]
  - Swelling [Not Recovered/Not Resolved]

NARRATIVE: CASE EVENT DATE: 20150818
